FAERS Safety Report 25892320 (Version 2)
Quarter: 2025Q4

REPORT INFORMATION
  Report Type: Spontaneous
  Country: CH (occurrence: CH)
  Receive Date: 20251007
  Receipt Date: 20251014
  Transmission Date: 20260117
  Serious: Yes (Disabling, Other)
  Sender: SANDOZ
  Company Number: CH-SANDOZ-SDZ2025CH072658

PATIENT
  Age: 41 Year
  Sex: Male

DRUGS (1)
  1. CIPROFLOXACIN [Suspect]
     Active Substance: CIPROFLOXACIN
     Indication: Product used for unknown indication
     Dosage: TWO 500 MG TABLETS,TOTAL OF 3 G
     Route: 065

REACTIONS (3)
  - Paraesthesia [Unknown]
  - Tenosynovitis [Unknown]
  - Palpitations [Unknown]
